FAERS Safety Report 13390498 (Version 6)
Quarter: 2017Q3

REPORT INFORMATION
  Report Type: Spontaneous
  Country: US (occurrence: US)
  Receive Date: 20170331
  Receipt Date: 20170726
  Transmission Date: 20171127
  Serious: No
  Sender: FDA-Public Use
  Company Number: US-PFIZER INC-2017140596

PATIENT
  Age: 61 Year
  Sex: Male
  Weight: 73 kg

DRUGS (1)
  1. SUTENT [Suspect]
     Active Substance: SUNITINIB MALATE
     Indication: RENAL CANCER STAGE IV
     Dosage: 50 MG, CYCLIC (28 DAYS ON/14 DAYS OFF)
     Dates: start: 20170308, end: 20170711

REACTIONS (11)
  - Neoplasm progression [Unknown]
  - Blood pressure increased [Unknown]
  - Blood urea increased [Unknown]
  - Hypogeusia [Unknown]
  - Blister [Recovered/Resolved]
  - Oral discomfort [Unknown]
  - Condition aggravated [Recovered/Resolved]
  - Oral pain [Recovered/Resolved]
  - Skin disorder [Unknown]
  - Hyperkeratosis [Recovered/Resolved]
  - Muscle spasms [Unknown]

NARRATIVE: CASE EVENT DATE: 201703
